FAERS Safety Report 11646218 (Version 3)
Quarter: 2016Q4

REPORT INFORMATION
  Report Type: Spontaneous
  Country: US (occurrence: US)
  Receive Date: 20151020
  Receipt Date: 20161013
  Transmission Date: 20170206
  Serious: No
  Sender: FDA-Public Use
  Company Number: US-ROCHE-1608487

PATIENT
  Sex: Male
  Weight: 136.2 kg

DRUGS (1)
  1. ESBRIET [Suspect]
     Active Substance: PIRFENIDONE
     Indication: IDIOPATHIC PULMONARY FIBROSIS
     Dosage: 3 CAPSULES THREE TIMES A DAY/ 801 MG TID
     Route: 048
     Dates: start: 20150707

REACTIONS (8)
  - Dizziness [Unknown]
  - Ill-defined disorder [Unknown]
  - Fall [Unknown]
  - Nausea [Unknown]
  - Skin atrophy [Unknown]
  - Asthenia [Unknown]
  - Fatigue [Unknown]
  - Photosensitivity reaction [Unknown]
